FAERS Safety Report 16016465 (Version 1)
Quarter: 2019Q1

REPORT INFORMATION
  Report Type: Spontaneous
  Country: US (occurrence: US)
  Receive Date: 20190131
  Receipt Date: 20190131
  Transmission Date: 20190418
  Serious: Yes (Other)
  Sender: FDA-Public Use
  Company Number: None

PATIENT
  Age: 70 Year
  Sex: Male

DRUGS (1)
  1. POMALYST [Suspect]
     Active Substance: POMALIDOMIDE
     Indication: PLASMA CELL MYELOMA
     Route: 048
     Dates: start: 20190103

REACTIONS (4)
  - Pain in extremity [None]
  - Deep vein thrombosis [None]
  - Infusion related reaction [None]
  - Peripheral swelling [None]

NARRATIVE: CASE EVENT DATE: 20190120
